FAERS Safety Report 9282446 (Version 1)
Quarter: 2013Q2

REPORT INFORMATION
  Report Type: Spontaneous
  Country: IT (occurrence: IT)
  Receive Date: 20130510
  Receipt Date: 20130510
  Transmission Date: 20140414
  Serious: Yes (Other)
  Sender: FDA-Public Use
  Company Number: IT-ACCORD-017579

PATIENT
  Age: 40 Year
  Sex: Female

DRUGS (4)
  1. DEXAMETHASONE PHOSPHATE [Concomitant]
     Indication: HYPERSENSITIVITY
     Dates: start: 20130326, end: 20130326
  2. GEMCITABINE [Suspect]
     Indication: ALVEOLAR SOFT PART SARCOMA
     Route: 042
     Dates: start: 20130326, end: 20130326
  3. ONDANSETRON [Concomitant]
     Indication: PROPHYLAXIS OF NAUSEA AND VOMITING
     Dates: start: 20130326, end: 20130326
  4. RANITIDINE [Concomitant]
     Indication: GASTROOESOPHAGEAL REFLUX PROPHYLAXIS
     Dates: start: 20130326, end: 20130326

REACTIONS (2)
  - Drug hypersensitivity [Recovered/Resolved]
  - Off label use [Unknown]
